FAERS Safety Report 9748183 (Version 2)
Quarter: 2014Q1

REPORT INFORMATION
  Report Type: Spontaneous
  Country: US (occurrence: US)
  Receive Date: 20131212
  Receipt Date: 20140114
  Transmission Date: 20141002
  Serious: No
  Sender: FDA-Public Use
  Company Number: US-PFIZER INC-2013352822

PATIENT
  Age: 65 Year
  Sex: Female
  Weight: 88.44 kg

DRUGS (4)
  1. GABAPENTIN [Suspect]
     Indication: NEUROPATHY PERIPHERAL
     Dosage: 600 MG, 4-6 TIMES DAILY
     Route: 048
  2. GABAPENTIN [Suspect]
     Indication: DIABETIC NEUROPATHY
  3. GABAPENTIN [Suspect]
     Indication: SLEEP DISORDER
  4. HYDROCODONE W/ACETAMINOPHEN [Concomitant]
     Indication: MUSCULOSKELETAL PAIN
     Dosage: HYDROCODONE BITARTRATE 10MG, PARACETAMOL 500 MG, EVERY 4 HRS

REACTIONS (5)
  - Off label use [Unknown]
  - Drug ineffective for unapproved indication [Unknown]
  - Condition aggravated [Unknown]
  - Discomfort [Unknown]
  - Intentional drug misuse [Unknown]
